FAERS Safety Report 16878334 (Version 1)
Quarter: 2019Q4

REPORT INFORMATION
  Report Type: Spontaneous
  Country: CH (occurrence: CH)
  Receive Date: 20191002
  Receipt Date: 20191002
  Transmission Date: 20200122
  Serious: Yes (Other)
  Sender: FDA-Public Use
  Company Number: CH-ANIPHARMA-2019-CH-000036

PATIENT
  Age: 79 Year
  Sex: Male

DRUGS (6)
  1. ASPIRINE C [Concomitant]
     Dosage: 100 MG DAILY
     Route: 048
  2. TEBOKAN [Concomitant]
     Active Substance: GINKGO
     Dosage: 240 MG DAILY
     Route: 048
  3. MOVICOL [Concomitant]
     Active Substance: POLYETHYLENE GLYCOL 3350\POTASSIUM CHLORIDE\SODIUM BICARBONATE\SODIUM CHLORIDE
     Dosage: AS NECESSARY
     Route: 048
  4. LISINOPRIL. [Concomitant]
     Active Substance: LISINOPRIL
     Dosage: 10 MG DAILY
     Route: 048
  5. CASODEX [Suspect]
     Active Substance: BICALUTAMIDE
     Indication: PROSTATE CANCER
     Dosage: 150 MG UNK
     Route: 048
     Dates: start: 2015
  6. LUCRIN [Suspect]
     Active Substance: LEUPROLIDE ACETATE
     Dosage: 1 DF UNK
     Route: 058
     Dates: start: 201510, end: 201610

REACTIONS (1)
  - Cognitive disorder [Unknown]

NARRATIVE: CASE EVENT DATE: 201807
